FAERS Safety Report 23313897 (Version 1)
Quarter: 2023Q4

REPORT INFORMATION
  Report Type: Other
  Country: CA (occurrence: None)
  Receive Date: 20231219
  Receipt Date: 20231219
  Transmission Date: 20240109
  Serious: No
  Sender: FDA-Public Use
  Company Number: CA-ROCHE-3139795

PATIENT
  Sex: Male

DRUGS (2)
  1. OCREVUS [Suspect]
     Active Substance: OCRELIZUMAB
     Indication: Relapsing-remitting multiple sclerosis
     Dosage: 300 MG AT DAY 0 AND 14, THEN 600 MG EVERY 6 MONTH
     Route: 042
     Dates: start: 20210731
  2. ZYBAN [Suspect]
     Active Substance: BUPROPION HYDROCHLORIDE
     Indication: Product used for unknown indication
     Route: 065

REACTIONS (8)
  - Pain in extremity [Unknown]
  - Depression [Unknown]
  - Memory impairment [Not Recovered/Not Resolved]
  - Skin laceration [Unknown]
  - Delusion [Recovered/Resolved]
  - Illness [Recovered/Resolved]
  - Infusion related reaction [Not Recovered/Not Resolved]
  - Influenza [Recovered/Resolved]
